FAERS Safety Report 13517639 (Version 1)
Quarter: 2017Q2

REPORT INFORMATION
  Report Type: Spontaneous
  Country: CA (occurrence: CA)
  Receive Date: 20170505
  Receipt Date: 20170505
  Transmission Date: 20170830
  Serious: Yes (Other)
  Sender: FDA-Public Use
  Company Number: CA-PFIZER INC-2017191804

PATIENT
  Age: 58 Year
  Sex: Female
  Weight: 87 kg

DRUGS (1)
  1. TECTA [Suspect]
     Active Substance: PANTOPRAZOLE MAGNESIUM
     Indication: DYSPEPSIA
     Dosage: 40 MG, QD
     Route: 048

REACTIONS (3)
  - Contusion [Recovered/Resolved]
  - Increased tendency to bruise [Recovered/Resolved]
  - Thrombocytopenia [Recovered/Resolved]
